FAERS Safety Report 4565187-9 (Version None)
Quarter: 2005Q1

REPORT INFORMATION
  Report Type: 
  Country: None (occurrence: None)
  Receive Date: 20050127
  Receipt Date: 20050127
  Transmission Date: 20050727
  Serious: No
  Sender: FDA-Public Use
  Company Number: None

PATIENT
  Sex: Male
  Weight: 21.3191 kg

DRUGS (1)
  1. CLARITIN [Suspect]
     Indication: RHINITIS ALLERGIC
     Dosage: 10 MG

REACTIONS (1)
  - PSYCHOMOTOR HYPERACTIVITY [None]
